FAERS Safety Report 6509864-9 (Version None)
Quarter: 2009Q4

REPORT INFORMATION
  Report Type: 
  Country: None (occurrence: None)
  Receive Date: 20091217
  Receipt Date: 20091207
  Transmission Date: 20100525
  Serious: Yes (Other)
  Sender: FDA-Public Use
  Company Number: 2009SP037565

PATIENT
  Age: 31 Year
  Sex: Female

DRUGS (1)
  1. IMPLANON [Suspect]
     Indication: CONTRACEPTION
     Dosage: 1 DF
     Dates: start: 20090817, end: 20091123

REACTIONS (5)
  - AFFECTIVE DISORDER [None]
  - ANGER [None]
  - IATROGENIC INJURY [None]
  - IMPLANT SITE PAIN [None]
  - WEIGHT INCREASED [None]
